FAERS Safety Report 23884980 (Version 1)
Quarter: 2024Q2

REPORT INFORMATION
  Report Type: Spontaneous
  Country: US (occurrence: US)
  Receive Date: 20240522
  Receipt Date: 20240522
  Transmission Date: 20240716
  Serious: No
  Sender: FDA-Public Use
  Company Number: US-AMNEAL PHARMACEUTICALS-2024-AMRX-00542

PATIENT
  Sex: Female

DRUGS (1)
  1. FAMOTIDINE [Suspect]
     Active Substance: FAMOTIDINE
     Indication: Product used for unknown indication
     Dosage: UNK (TWICE DAILY)
     Route: 065

REACTIONS (7)
  - Drug ineffective [Unknown]
  - Crying [Unknown]
  - Decreased appetite [Unknown]
  - Flatulence [Unknown]
  - Infantile spitting up [Unknown]
  - Middle insomnia [Unknown]
  - Pain [Unknown]
